FAERS Safety Report 7469365-0 (Version None)
Quarter: 2011Q2

REPORT INFORMATION
  Report Type: 
  Country: None (occurrence: None)
  Receive Date: 20110510
  Receipt Date: 20110407
  Transmission Date: 20111010
  Serious: Yes (Other)
  Sender: FDA-Public Use
  Company Number: US-BAYER-201029371NA

PATIENT
  Age: 35 Year
  Sex: Female
  Weight: 58.957 kg

DRUGS (9)
  1. MOTRIN [Concomitant]
     Dosage: UNK
     Dates: start: 19860101
  2. YASMIN [Suspect]
     Indication: MENORRHAGIA
  3. YASMIN [Suspect]
     Indication: CONTRACEPTION
     Dosage: UNK
     Route: 048
     Dates: start: 20070607, end: 20080402
  4. ALEVE [Concomitant]
     Dosage: UNK
     Dates: start: 19860101
  5. YAZ [Suspect]
     Indication: MENORRHAGIA
  6. IBUPROFEN (ADVIL) [Concomitant]
     Dosage: UNK
     Dates: start: 19860101
  7. YAZ [Suspect]
     Indication: CONTRACEPTION
     Dosage: UNK
     Route: 048
     Dates: start: 20080530, end: 20080627
  8. DROSPIRENONE AND ETHINYL ESTRADIOL [Suspect]
     Indication: MENORRHAGIA
  9. DROSPIRENONE AND ETHINYL ESTRADIOL [Suspect]
     Indication: CONTRACEPTION
     Dosage: UNK UNK, UNK
     Route: 048
     Dates: start: 20080725, end: 20090409

REACTIONS (4)
  - GALLBLADDER DISORDER [None]
  - CHOLECYSTITIS CHRONIC [None]
  - ANXIETY [None]
  - DEPRESSION [None]
